FAERS Safety Report 12263017 (Version 1)
Quarter: 2016Q2

REPORT INFORMATION
  Report Type: Spontaneous
  Country: US (occurrence: US)
  Receive Date: 20160413
  Receipt Date: 20160413
  Transmission Date: 20160815
  Serious: No
  Sender: FDA-Public Use
  Company Number: US-PFIZER INC-2016200549

PATIENT
  Age: 67 Year
  Sex: Female

DRUGS (3)
  1. IRON [Concomitant]
     Active Substance: IRON
     Dosage: UNK
  2. XELJANZ [Suspect]
     Active Substance: TOFACITINIB CITRATE
     Dosage: 5 MG, 2X/DAY
  3. VITA B [Concomitant]
     Dosage: UNK

REACTIONS (1)
  - Fatigue [Unknown]
